FAERS Safety Report 9095660 (Version 3)
Quarter: 2013Q1

REPORT INFORMATION
  Report Type: Spontaneous
  Country: AT (occurrence: AT)
  Receive Date: 20130219
  Receipt Date: 20130304
  Transmission Date: 20140127
  Serious: Yes (Life-Threatening, Hospitalization)
  Sender: FDA-Public Use
  Company Number: AT-PFIZER INC-2013054234

PATIENT
  Age: 65 Year
  Sex: Female
  Weight: 57.4 kg

DRUGS (17)
  1. EDRONAX [Suspect]
     Dosage: 4 MG, UNK
     Dates: start: 20130122
  2. TRITACE [Suspect]
     Dosage: 2.5 MG, DAILY
     Route: 048
     Dates: end: 20130201
  3. QUILONORM [Suspect]
     Indication: DEPRESSION
     Dosage: 225 MG, DAILY
     Route: 065
     Dates: start: 20121228, end: 20130102
  4. QUILONORM [Suspect]
     Dosage: 675 MG, DAILY
     Route: 065
     Dates: start: 20130103, end: 20130124
  5. QUILONORM [Suspect]
     Dosage: 450 MG, DAILY
     Route: 065
     Dates: start: 20130124
  6. CIPRALEX [Suspect]
     Dosage: 10 MG, UNK
     Dates: end: 20130114
  7. LAMICTAL [Suspect]
     Dosage: 50 MG, UNK
     Dates: end: 20130117
  8. RISPERDAL [Suspect]
     Dosage: 3 MG, DAILY
     Route: 065
     Dates: end: 20130116
  9. RISPERDAL [Suspect]
     Dosage: 2 MG, DAILY
     Route: 065
     Dates: start: 20130117, end: 20130128
  10. EUTHYROX [Suspect]
     Dosage: 75 UG, UNK
  11. PANTOLOC [Suspect]
     Dosage: 40 MG, UNK
  12. SEROQUEL [Suspect]
     Indication: MAJOR DEPRESSION
     Dosage: 100 MG, 1X/DAY
     Route: 048
  13. VENLAFAB [Suspect]
     Dosage: 150 MG, DAILY
     Route: 048
     Dates: start: 20130109, end: 20130118
  14. VENLAFAB [Suspect]
     Dosage: 300 MG, DAILY
     Route: 048
     Dates: start: 20130119
  15. ESCITALOPRAM [Concomitant]
     Dosage: UNK
     Dates: end: 20130114
  16. LAMOTRIGINE [Concomitant]
     Dosage: UNK
     Dates: end: 20130117
  17. PANTOPRAZOLE [Concomitant]
     Dosage: UNK

REACTIONS (1)
  - Ventricular extrasystoles [Not Recovered/Not Resolved]
